FAERS Safety Report 6547414-1 (Version None)
Quarter: 2010Q1

REPORT INFORMATION
  Report Type: 
  Country: None (occurrence: None)
  Receive Date: 20100122
  Receipt Date: 20100114
  Transmission Date: 20100710
  Serious: Yes (Hospitalization, Other)
  Sender: FDA-Public Use
  Company Number: PHEH2008US08048

PATIENT
  Sex: Female

DRUGS (20)
  1. VIVELLE-DOT [Suspect]
     Indication: HORMONE REPLACEMENT THERAPY
     Dosage: UNK
  2. COMBIPATCH [Suspect]
     Dosage: 50/250MG, EVERY 4 DAYS
  3. CLIMARA [Suspect]
     Indication: HORMONE REPLACEMENT THERAPY
     Dosage: UNK
  4. PROMETRIUM [Suspect]
     Indication: HORMONE REPLACEMENT THERAPY
     Dosage: UNK
  5. NORVASC [Concomitant]
  6. SYNTHROID [Concomitant]
  7. LITHIUM [Concomitant]
  8. PARNATE                                 /UNK/ [Concomitant]
  9. VIOXX [Concomitant]
  10. PREVACID [Concomitant]
  11. ZOCOR [Concomitant]
  12. KLONOPIN [Concomitant]
     Dosage: UNK
  13. IMIPRAMINE [Concomitant]
     Dosage: UNK
  14. TOFRANIL [Concomitant]
  15. RISPERDAL [Concomitant]
     Dosage: UNK
  16. PREMPHASE 14/14 [Concomitant]
     Dosage: UNK
  17. PROVERA [Concomitant]
     Dosage: UNK
  18. LUPRON [Concomitant]
     Dosage: UNK
  19. PROGESTERONE [Concomitant]
     Dosage: 100 MG SUBLINGUAL
     Dates: start: 19910111
  20. ORTHO TRI-CYCLEN [Concomitant]

REACTIONS (10)
  - APPENDICECTOMY [None]
  - BREAST CANCER [None]
  - BREAST LUMP REMOVAL [None]
  - COUGH [None]
  - HOT FLUSH [None]
  - INJURY [None]
  - MASTECTOMY [None]
  - OVARIAN CYST [None]
  - UMBILICAL HERNIA REPAIR [None]
  - VULVOVAGINAL DISCOMFORT [None]
